FAERS Safety Report 17268163 (Version 1)
Quarter: 2020Q1

REPORT INFORMATION
  Report Type: Spontaneous
  Country: US (occurrence: US)
  Receive Date: 20200114
  Receipt Date: 20200114
  Transmission Date: 20200409
  Serious: Yes (Death, Hospitalization)
  Sender: FDA-Public Use
  Company Number: US-BAYER-2020-003254

PATIENT
  Age: 73 Year
  Sex: Female

DRUGS (6)
  1. ACETYLSALICYLIC ACID + PARACETAMOL + CAFFEINE [Suspect]
     Active Substance: ACETAMINOPHEN\ASPIRIN\CAFFEINE
     Route: 048
  2. OXYCODONE [Suspect]
     Active Substance: OXYCODONE
  3. LOSARTAN. [Suspect]
     Active Substance: LOSARTAN
  4. SERTRALINE [Suspect]
     Active Substance: SERTRALINE HYDROCHLORIDE
  5. QUETIAPINE. [Suspect]
     Active Substance: QUETIAPINE
  6. HYPOLIPID [Suspect]
     Active Substance: GEMFIBROZIL

REACTIONS (2)
  - Completed suicide [Fatal]
  - Toxicity to various agents [Fatal]
